FAERS Safety Report 8825617 (Version 2)
Quarter: 2013Q3

REPORT INFORMATION
  Report Type: Spontaneous
  Country: US (occurrence: US)
  Receive Date: 20121004
  Receipt Date: 20130708
  Transmission Date: 20140515
  Serious: No
  Sender: FDA-Public Use
  Company Number: US-009507513-1209USA007859

PATIENT
  Age: 46 Year
  Sex: Female
  Weight: 95.24 kg

DRUGS (16)
  1. PEGINTRON [Suspect]
     Indication: HEPATITIS C
     Dosage: 180 MICROGRAM, QW, REDIPEN
     Route: 058
     Dates: start: 20120424, end: 20121006
  2. PEGINTRON [Suspect]
     Dosage: 0.4 ML, UNK
     Dates: start: 2012
  3. REBETOL [Suspect]
     Indication: HEPATITIS C
     Dosage: 3 DF, BID (1200 MG)
     Route: 048
     Dates: start: 20120424, end: 20121006
  4. REBETOL [Suspect]
     Dosage: 1 DF, QD
     Route: 048
  5. TELAPREVIR [Suspect]
     Indication: HEPATITIS C
     Dosage: TAKE 750 MG BY MOUTH 3 TIMES DAILY
     Route: 048
     Dates: start: 20120424, end: 20120715
  6. TELAPREVIR [Suspect]
     Dosage: ONE BOX A WEEK
     Route: 048
  7. PROVENTIL [Concomitant]
     Dosage: INHALE 1-2 PUFFS EVERY 4 HOURS AS NEEDED.
     Route: 055
     Dates: start: 20120124
  8. TYLENOL [Concomitant]
  9. VENTOLIN (ALBUTEROL SULFATE) [Concomitant]
     Dosage: INHALE 1-2 PUFFS EVERY 4 HOURS AS NEEDED.
     Route: 055
     Dates: start: 20120124
  10. REYATAZ [Concomitant]
     Dosage: TAKE 1 CAPSULE BY MOUTH DAILY (WITH BREAKFAST).
     Route: 048
     Dates: start: 20120126
  11. TRUVADA [Concomitant]
     Dosage: TAKE 1 TABLET BY MOUTH DAILY (EVERY 24 HOURS)
     Route: 048
     Dates: start: 20120126
  12. PREMARIN [Concomitant]
     Dosage: TAKE 1 TABLET BY MOUTH DAILY (EVERY 24 HOURS).
     Route: 048
     Dates: start: 20130124
  13. THERAGRAN TABLETS ADVANCED FORMULA [Concomitant]
     Dosage: TAKE 1 TABLET BY MOUTH DAILY (EVERY 24 HOURS)
     Route: 048
     Dates: start: 20120124
  14. NAPROSYN [Concomitant]
     Indication: PAIN
     Dosage: TAKE 1 TABLET BY MOUTH 2 TIMES DAILY (WITH MEALS)
     Route: 048
     Dates: start: 20130305
  15. NAPROSYN [Concomitant]
     Indication: ARTHRITIS
  16. NORVIR [Concomitant]
     Dosage: TAKE 1 TABLET BY MOUTH DAILY (EVERY 24 HOURS)
     Route: 048
     Dates: start: 20120126

REACTIONS (8)
  - Gastrooesophageal reflux disease [Not Recovered/Not Resolved]
  - Vomiting [Recovered/Resolved]
  - Dizziness [Unknown]
  - Nausea [Recovered/Resolved]
  - Depression [Unknown]
  - Underdose [Unknown]
  - Product quality issue [Unknown]
  - Drug dose omission [Unknown]
